FAERS Safety Report 16160216 (Version 1)
Quarter: 2019Q2

REPORT INFORMATION
  Report Type: Other
  Country: US (occurrence: US)
  Receive Date: 20190404
  Receipt Date: 20190404
  Transmission Date: 20190711
  Serious: Yes (Life-Threatening)
  Sender: FDA-Public Use
  Company Number: US-STANDARD HOMEOPATHIC COMPANY-2065317

PATIENT
  Age: 88 Year
  Sex: Female

DRUGS (3)
  1. HYLAND^S LEG CRAMPS CAPLETS [Suspect]
     Active Substance: HOMEOPATHICS
     Indication: ARTHRALGIA
     Route: 048
     Dates: start: 20170322, end: 20190322
  2. HYLAND^S LEG CRAMPS CAPLETS [Suspect]
     Active Substance: HOMEOPATHICS
     Indication: MUSCLE SPASMS
     Route: 048
     Dates: start: 20170322, end: 20190322
  3. HYLAND^S LEG CRAMPS CAPLETS [Suspect]
     Active Substance: HOMEOPATHICS
     Indication: PAIN IN EXTREMITY
     Route: 048
     Dates: start: 20170322, end: 20190322

REACTIONS (4)
  - Platelet count decreased [Recovered/Resolved]
  - Haemorrhage [None]
  - Contusion [None]
  - Tooth extraction [None]

NARRATIVE: CASE EVENT DATE: 20190301
